FAERS Safety Report 12780924 (Version 2)
Quarter: 2017Q1

REPORT INFORMATION
  Report Type: Spontaneous
  Country: US (occurrence: US)
  Receive Date: 20160926
  Receipt Date: 20170324
  Transmission Date: 20170428
  Serious: Yes (Hospitalization)
  Sender: FDA-Public Use
  Company Number: US-TEVA-695541USA

PATIENT
  Sex: Female
  Weight: 74.91 kg

DRUGS (1)
  1. FENTANYL. [Suspect]
     Active Substance: FENTANYL
     Indication: PAIN
     Dosage: 75 MCG/5
     Route: 062

REACTIONS (3)
  - Product adhesion issue [Unknown]
  - Autoimmune disorder [Unknown]
  - Dry skin [Unknown]
